FAERS Safety Report 7029423-1 (Version None)
Quarter: 2010Q4

REPORT INFORMATION
  Report Type: 
  Country: None (occurrence: None)
  Receive Date: 20101005
  Receipt Date: 20100930
  Transmission Date: 20110411
  Serious: Yes (Death)
  Sender: FDA-Public Use
  Company Number: PHHY2010US65243

PATIENT
  Sex: Female
  Weight: 54.43 kg

DRUGS (5)
  1. EXJADE [Suspect]
     Indication: NEOPLASM
     Dosage: 500 MG, BID
     Route: 048
     Dates: start: 20100305
  2. LEVAQUIN [Concomitant]
  3. ACYCLOVIR SODIUM [Concomitant]
  4. LEVOTHYROXINE SODIUM [Concomitant]
  5. FLUCONAZOLE [Concomitant]

REACTIONS (1)
  - DEATH [None]
